FAERS Safety Report 8462701-8 (Version None)
Quarter: 2012Q2

REPORT INFORMATION
  Report Type: 
  Country: None (occurrence: None)
  Receive Date: 20120625
  Receipt Date: 20120621
  Transmission Date: 20120825
  Serious: Yes (Hospitalization)
  Sender: FDA-Public Use
  Company Number: FR-ROCHE-1076095

PATIENT
  Sex: Male
  Weight: 65 kg

DRUGS (7)
  1. METHADONE HCL [Concomitant]
     Indication: DRUG DEPENDENCE
     Route: 048
     Dates: start: 20050721
  2. COPEGUS [Suspect]
     Indication: HEPATITIS C
     Route: 048
     Dates: start: 20120216
  3. VALIUM [Concomitant]
     Indication: ALCOHOLISM
     Route: 048
     Dates: start: 20050101
  4. ACETAMINOPHEN [Concomitant]
     Indication: INFLUENZA
     Route: 048
     Dates: start: 20120226
  5. PEGASYS [Suspect]
     Indication: HEPATITIS C
     Route: 058
     Dates: start: 20120216
  6. HAVLANE [Concomitant]
     Route: 065
  7. LEXOMIL [Concomitant]
     Indication: ANXIETY
     Route: 048
     Dates: start: 20050101

REACTIONS (2)
  - PULMONARY TUBERCULOSIS [None]
  - CYSTITIS [None]
